FAERS Safety Report 7021425-4 (Version None)
Quarter: 2010Q3

REPORT INFORMATION
  Report Type: 
  Country: None (occurrence: None)
  Receive Date: 20100929
  Receipt Date: 20100917
  Transmission Date: 20110219
  Serious: Yes (Other)
  Sender: FDA-Public Use
  Company Number: US-ELI_LILLY_AND_COMPANY-US201009005495

PATIENT

DRUGS (1)
  1. FORTEO [Suspect]

REACTIONS (2)
  - HEMIPLEGIA [None]
  - INJECTION SITE HAEMATOMA [None]
